FAERS Safety Report 20181533 (Version 3)
Quarter: 2022Q2

REPORT INFORMATION
  Report Type: Report from Study
  Country: US (occurrence: US)
  Receive Date: 20211214
  Receipt Date: 20220421
  Transmission Date: 20220721
  Serious: Yes (Other)
  Sender: FDA-Public Use
  Company Number: US-TEVA-2021-US-1987600

PATIENT
  Age: 27 Year
  Sex: Female

DRUGS (4)
  1. CLARAVIS [Suspect]
     Active Substance: ISOTRETINOIN
     Route: 065
     Dates: start: 20210713
  2. CLARAVIS [Suspect]
     Active Substance: ISOTRETINOIN
     Dosage: 80 MILLIGRAM DAILY;
     Route: 065
     Dates: start: 20210713
  3. CLARAVIS [Suspect]
     Active Substance: ISOTRETINOIN
     Dosage: 80 MILLIGRAM DAILY;
     Route: 065
     Dates: start: 20210812, end: 20211203
  4. SPRINTEC [Suspect]
     Active Substance: ETHINYL ESTRADIOL\NORGESTIMATE
     Indication: Oral contraception
     Route: 065
     Dates: start: 2019

REACTIONS (1)
  - Unintended pregnancy [Unknown]

NARRATIVE: CASE EVENT DATE: 20211112
